FAERS Safety Report 7605102-4 (Version None)
Quarter: 2011Q3

REPORT INFORMATION
  Report Type: 
  Country: None (occurrence: None)
  Receive Date: 20110713
  Receipt Date: 20101221
  Transmission Date: 20111222
  Serious: Yes (Hospitalization, Disabling, Other)
  Sender: FDA-Public Use
  Company Number: US-BAYER-200940963NA

PATIENT
  Age: 52 Year
  Sex: Male
  Weight: 133.79 kg

DRUGS (32)
  1. CARDURA [Concomitant]
     Dosage: 4 MG, QD
     Route: 048
  2. LISINOPRIL [Concomitant]
     Dosage: 20 MG, UNK
     Route: 048
     Dates: start: 19940101
  3. LOPRESSOR [Concomitant]
     Dosage: 50 MG, UNK
     Route: 048
     Dates: start: 19990811
  4. MAGNESIUM SULFATE [Concomitant]
     Dosage: 1 G, UNK
     Route: 042
     Dates: start: 19990816, end: 19990816
  5. MANNITOL [Concomitant]
     Dosage: 12.5 PUMP PRIME
     Dates: start: 19990816, end: 19990816
  6. NITROGLYCERIN [Concomitant]
     Dosage: UNK, TITRATED
     Route: 042
     Dates: start: 19990812
  7. ANCEF [Concomitant]
     Dosage: 3 G, UNK
     Route: 042
     Dates: start: 19990816, end: 19990816
  8. HEPARIN [Concomitant]
     Dosage: 5,000 UNITS PUMP PRIME
     Dates: start: 19990816, end: 19990816
  9. ISOFLURANE [Concomitant]
     Dosage: UNK, INHALANT
     Route: 055
     Dates: start: 19990816, end: 19990816
  10. HYDROCHLOROTHIAZIDE [Concomitant]
     Dosage: UNK
     Route: 048
     Dates: start: 19990101
  11. LOVENOX [Concomitant]
     Dosage: 70 MG, UNK
     Route: 058
     Dates: start: 19990811
  12. PAVULON [Concomitant]
     Dosage: UNK
     Route: 042
     Dates: start: 19990816, end: 19990816
  13. PROTAMINE SULFATE [Concomitant]
     Dosage: UNK
     Route: 042
     Dates: start: 19990816, end: 19990816
  14. RED BLOOD CELLS [Concomitant]
     Dosage: 250 ML, TO PRIME PUMP
     Route: 042
     Dates: start: 19990816, end: 19990816
  15. FUROSEMIDE [Concomitant]
     Dosage: 40 MG, BID
     Route: 048
     Dates: start: 19960101
  16. NITROGLYCERIN [Concomitant]
     Dosage: 2 INCHES
     Route: 062
     Dates: start: 19990811
  17. FENTANYL-100 [Concomitant]
     Dosage: 15 ML, UNK
     Route: 042
     Dates: start: 19990816, end: 19990816
  18. LIDOCAINE [Concomitant]
     Dosage: 100 MG, UNK
     Route: 042
     Dates: start: 19990816, end: 19990816
  19. CARDIOPLEGIA [Concomitant]
     Dosage: 2500 ML, UNK
     Dates: start: 19990816, end: 19990816
  20. ZOCOR [Concomitant]
     Route: 048
  21. METOPROLOL TARTRATE [Concomitant]
     Dosage: 50 MG, BID
     Route: 048
  22. NORVASC [Concomitant]
     Dosage: 5 MG, QD (PRIOR TO ADMISSION)
     Route: 048
  23. HEPARIN [Concomitant]
     Dosage: 28000 U, UNK
     Route: 042
     Dates: start: 19990816, end: 19990816
  24. TRASYLOL [Suspect]
     Indication: CORONARY ARTERY BYPASS
     Dosage: UNK
     Dates: start: 19990816, end: 19990816
  25. CALCIUM CHLORIDE [Concomitant]
     Dosage: 1 G, UNK
     Route: 042
     Dates: start: 19990816, end: 19990816
  26. AMICAR [Concomitant]
     Dosage: 5 G, UNK
     Route: 042
     Dates: start: 19990816, end: 19990816
  27. ACCUPRIL [Concomitant]
     Dosage: 20 MG, QD
     Route: 048
     Dates: start: 19960101
  28. LOPRESSOR [Concomitant]
     Dosage: 15 MG, UNK
     Route: 042
     Dates: start: 19990811
  29. HEPARIN [Concomitant]
     Dosage: 15,000 UNITS ON BYPASS
     Dates: start: 19990816, end: 19990816
  30. VERSED [Concomitant]
     Dosage: 4 MG, UNK
     Route: 042
     Dates: start: 19990816, end: 19990816
  31. PHENYLEPHRINE HCL [Concomitant]
     Dosage: 200 MCG X7 DOSES ON BYPASS
     Dates: start: 19990816, end: 19990816
  32. ISOVUE-128 [Concomitant]
     Dosage: 100 ML, UNK
     Route: 042
     Dates: start: 19990813, end: 19990813

REACTIONS (11)
  - RENAL FAILURE [None]
  - ANHEDONIA [None]
  - ANXIETY [None]
  - INJURY [None]
  - DEPRESSION [None]
  - DISABILITY [None]
  - PAIN [None]
  - MULTI-ORGAN FAILURE [None]
  - RENAL INJURY [None]
  - UNEVALUABLE EVENT [None]
  - FEAR [None]
